FAERS Safety Report 4342661-1 (Version None)
Quarter: 2004Q1

REPORT INFORMATION
  Report Type: 
  Country: None (occurrence: None)
  Receive Date: 20040213
  Receipt Date: 20031110
  Transmission Date: 20041129
  Serious: Yes (Hospitalization, Disabling)
  Sender: FDA-Public Use
  Company Number: 351240

PATIENT
  Age: 52 Year
  Weight: 82.6 kg

DRUGS (2)
  1. PEGASYS [Suspect]
     Indication: HEPATITIS C
     Dates: start: 20030724, end: 20030910
  2. COPEGUS [Suspect]
     Indication: HEPATITIS C
     Dates: start: 20030724, end: 20030910

REACTIONS (3)
  - DYSPNOEA [None]
  - LUNG INFILTRATION [None]
  - PYREXIA [None]
